FAERS Safety Report 5699982-X (Version None)
Quarter: 2008Q2

REPORT INFORMATION
  Report Type: 
  Country: None (occurrence: None)
  Receive Date: 20080410
  Receipt Date: 20080401
  Transmission Date: 20081010
  Serious: Yes (Hospitalization, Other)
  Sender: FDA-Public Use
  Company Number: PHBS2006BR18104

PATIENT
  Age: 70 Year
  Sex: Female
  Weight: 54 kg

DRUGS (9)
  1. ACLASTA [Suspect]
     Indication: OSTEOPOROSIS
     Dosage: 1 DF, 1 AMPOULE PER YEAR
     Route: 042
  2. CELESTONE TAB [Concomitant]
     Dosage: 0.5 MG/D
     Route: 065
  3. BESEROL [Concomitant]
     Indication: PAIN
     Dosage: UNK, BID
     Route: 048
     Dates: start: 20060101
  4. PRELONE [Concomitant]
     Dosage: 0.5 MG, QD
     Route: 048
  5. CARDIZEM [Concomitant]
     Indication: ANGINA PECTORIS
     Dosage: 60 MG, TID
     Route: 048
  6. MONOCORDIL [Concomitant]
     Indication: ANGINA PECTORIS
     Dosage: 20 MG, BID
  7. PLAVIX [Concomitant]
     Indication: ANGINA PECTORIS
     Dosage: 75 MG, QD
     Route: 048
     Dates: start: 20050101
  8. CRESTOR [Concomitant]
     Dosage: 20 MG, QD
     Route: 048
  9. LEXOTAN [Concomitant]
     Dosage: 3 MG, QD
     Route: 048

REACTIONS (14)
  - CAST APPLICATION [None]
  - FALL [None]
  - GAIT DISTURBANCE [None]
  - HIP SURGERY [None]
  - MULTIPLE FRACTURES [None]
  - MUSCLE ATROPHY [None]
  - PAIN IN EXTREMITY [None]
  - PROSTHESIS IMPLANTATION [None]
  - SKIN REACTION [None]
  - SURGERY [None]
  - UPPER LIMB FRACTURE [None]
  - WOUND [None]
  - WRIST FRACTURE [None]
  - WRIST SURGERY [None]
